FAERS Safety Report 14318162 (Version 1)
Quarter: 2017Q4

REPORT INFORMATION
  Report Type: Spontaneous
  Country: DE (occurrence: DE)
  Receive Date: 20171222
  Receipt Date: 20171222
  Transmission Date: 20180321
  Serious: Yes (Other)
  Sender: FDA-Public Use
  Company Number: DE-ALLERGAN-1772788US

PATIENT
  Age: 41 Year
  Sex: Female

DRUGS (1)
  1. ESCITALOPRAM OXALATE - BP [Suspect]
     Active Substance: ESCITALOPRAM OXALATE
     Indication: ANXIETY
     Dosage: 5 OR 10 MG
     Route: 065
     Dates: end: 20171116

REACTIONS (3)
  - Drug dependence [Unknown]
  - Pregnancy [Recovered/Resolved]
  - Anxiety [Unknown]
